FAERS Safety Report 4708023-X (Version None)
Quarter: 2005Q2

REPORT INFORMATION
  Report Type: 
  Country: None (occurrence: None)
  Receive Date: 20050629
  Receipt Date: 20050322
  Transmission Date: 20051028
  Serious: No
  Sender: FDA-Public Use
  Company Number: 05P-163-0294872-00

PATIENT
  Age: 57 Year
  Sex: Female
  Weight: 116 kg

DRUGS (6)
  1. HUMIRA [Suspect]
     Indication: RHEUMATOID ARTHRITIS
     Dosage: SEE IMAGE
     Route: 058
     Dates: start: 20041001, end: 20041201
  2. HUMIRA [Suspect]
     Indication: RHEUMATOID ARTHRITIS
     Dosage: SEE IMAGE
     Route: 058
     Dates: start: 20050101, end: 20050201
  3. HUMIRA [Suspect]
     Indication: RHEUMATOID ARTHRITIS
     Dosage: SEE IMAGE
     Route: 058
     Dates: start: 20050311
  4. IBUPROFEN [Concomitant]
  5. OMEPRAZOLE [Concomitant]
  6. SERTRALINE HYDROCHLORIDE [Concomitant]

REACTIONS (7)
  - BRONCHITIS [None]
  - COUGH [None]
  - ERYTHEMA [None]
  - INFLUENZA [None]
  - PRURITUS [None]
  - RASH [None]
  - URTICARIA [None]
